FAERS Safety Report 7049647-7 (Version None)
Quarter: 2010Q4

REPORT INFORMATION
  Report Type: 
  Country: None (occurrence: None)
  Receive Date: 20101018
  Receipt Date: 20101010
  Transmission Date: 20110411
  Serious: Yes (Death, Hospitalization)
  Sender: FDA-Public Use
  Company Number: A0875354A

PATIENT
  Age: 77 Year
  Sex: Male

DRUGS (1)
  1. AVANDIA [Suspect]
     Indication: DIABETES MELLITUS
     Route: 048
     Dates: start: 20040108, end: 20091126

REACTIONS (6)
  - CARDIAC DISORDER [None]
  - CEREBROVASCULAR ACCIDENT [None]
  - CORONARY ARTERY BYPASS [None]
  - CORONARY ARTERY DISEASE [None]
  - HYPERCHOLESTEROLAEMIA [None]
  - MYOCARDIAL INFARCTION [None]
